FAERS Safety Report 24113119 (Version 1)
Quarter: 2024Q3

REPORT INFORMATION
  Report Type: Report from Study
  Country: US (occurrence: None)
  Receive Date: 20240719
  Receipt Date: 20240719
  Transmission Date: 20241016
  Serious: Yes (Other)
  Sender: ASTRAZENECA
  Company Number: 2024A132453

PATIENT
  Age: 69 Year
  Sex: Male
  Weight: 122.5 kg

DRUGS (2)
  1. TEZEPELUMAB-EKKO [Suspect]
     Active Substance: TEZEPELUMAB-EKKO
     Indication: Asthma
     Route: 058
     Dates: start: 20240216, end: 20240422
  2. BREZTRI [Suspect]
     Active Substance: BUDESONIDE\FORMOTEROL\GLYCOPYRROLATE
     Dosage: 160-9-4.8 MCG
     Route: 055

REACTIONS (3)
  - Dysstasia [Unknown]
  - Gait disturbance [Unknown]
  - Musculoskeletal discomfort [Unknown]
